FAERS Safety Report 6755857-6 (Version None)
Quarter: 2010Q2

REPORT INFORMATION
  Report Type: 
  Country: None (occurrence: None)
  Receive Date: 20100603
  Receipt Date: 20100603
  Transmission Date: 20101027
  Serious: No
  Sender: FDA-Public Use
  Company Number: None

PATIENT
  Age: 61 Year
  Sex: Female
  Weight: 68.0396 kg

DRUGS (1)
  1. ZICAM NASAL GEL 2X MATRIXX [Suspect]
     Indication: NASOPHARYNGITIS
     Dosage: 1 SPRAY PER NOSTRIL EVERY 4 HRS NASAL
     Route: 045
     Dates: start: 20100529, end: 20100530

REACTIONS (6)
  - AGEUSIA [None]
  - ANOSMIA [None]
  - MIDDLE INSOMNIA [None]
  - NASAL CONGESTION [None]
  - NASAL DISCOMFORT [None]
  - NASOPHARYNGITIS [None]
